FAERS Safety Report 23630339 (Version 1)
Quarter: 2024Q1

REPORT INFORMATION
  Report Type: Spontaneous
  Country: CN (occurrence: None)
  Receive Date: 20240314
  Receipt Date: 20240314
  Transmission Date: 20240410
  Serious: Yes (Other)
  Sender: FDA-Public Use
  Company Number: 2024A058477

PATIENT
  Age: 18675 Day
  Sex: Female

DRUGS (7)
  1. OLAPARIB [Suspect]
     Active Substance: OLAPARIB
     Indication: Ovarian cancer
     Route: 048
     Dates: start: 20231127, end: 20240226
  2. PACLITAXEL/CARBOPLATIN [Concomitant]
     Dates: start: 20230719
  3. PACLITAXEL/CARBOPLATIN [Concomitant]
     Dates: start: 20230811
  4. PACLITAXEL/CARBOPLATIN [Concomitant]
     Dates: start: 20230904
  5. PACLITAXEL/CARBOPLATIN [Concomitant]
     Dates: start: 20230925
  6. PACLITAXEL/CARBOPLATIN [Concomitant]
     Dates: start: 20231106
  7. PACLITAXEL/CARBOPLATIN [Concomitant]
     Dates: start: 20231016

REACTIONS (2)
  - Myelosuppression [Unknown]
  - Anaemia [Unknown]

NARRATIVE: CASE EVENT DATE: 20240304
